FAERS Safety Report 20940112 (Version 1)
Quarter: 2022Q2

REPORT INFORMATION
  Report Type: Spontaneous
  Country: JP (occurrence: JP)
  Receive Date: 20220609
  Receipt Date: 20220609
  Transmission Date: 20220721
  Serious: Yes (Hospitalization, Other)
  Sender: FDA-Public Use
  Company Number: JP-PFIZER INC-202200791083

PATIENT
  Age: 42 Year
  Sex: Male
  Weight: 73 kg

DRUGS (15)
  1. PAXLOVID [Interacting]
     Active Substance: NIRMATRELVIR\RITONAVIR
     Indication: COVID-19 treatment
     Dosage: PF-07321332 150 MG/RITONAVIR 100 MG, 2X/DAY ((MODERATE RENAL IMPAIRMENT)
     Route: 048
     Dates: start: 20220416, end: 20220420
  2. TACROLIMUS [Interacting]
     Active Substance: TACROLIMUS
     Dosage: UNK
     Route: 048
     Dates: start: 20220416, end: 20220421
  3. Insulin Lispro BS Injection HU [Concomitant]
     Dosage: UNK
     Route: 058
     Dates: start: 20220416, end: 20220430
  4. Tresiba Injection FlexTouch [Concomitant]
     Dosage: UNK
     Route: 058
     Dates: start: 20220416, end: 20220430
  5. CELLCEPT [Concomitant]
     Active Substance: MYCOPHENOLATE MOFETIL
     Dosage: 250
     Route: 048
     Dates: start: 20220416, end: 20220420
  6. MEDROL [Concomitant]
     Active Substance: METHYLPREDNISOLONE
     Dosage: UNK
     Route: 048
     Dates: start: 20220416, end: 20220430
  7. NEXIUM [Concomitant]
     Active Substance: ESOMEPRAZOLE MAGNESIUM
     Dosage: 20 MG
     Route: 048
     Dates: start: 20220416, end: 20220430
  8. AMLODIPINE [Concomitant]
     Active Substance: AMLODIPINE BESYLATE
     Dosage: 2.5 MG
     Route: 048
     Dates: start: 20220416, end: 20220430
  9. ZOLPIDEM TARTRATE [Concomitant]
     Active Substance: ZOLPIDEM TARTRATE
     Dosage: 5 MG
     Route: 048
     Dates: start: 20220416, end: 20220430
  10. SULFAMETHOXAZOLE\TRIMETHOPRIM [Concomitant]
     Active Substance: SULFAMETHOXAZOLE\TRIMETHOPRIM
     Dosage: UNK
     Route: 048
     Dates: start: 20220418, end: 20220428
  11. HALIZON SYRUP [Concomitant]
     Dosage: UNK (FOR GARGLING), EXTERNAL USE
     Dates: start: 20220416, end: 20220427
  12. POVIDONE-IODINE GARGLE [Concomitant]
     Dosage: UNK EXTERNAL USE
     Dates: start: 20220416, end: 20220429
  13. TRANEXAMIC ACID [Concomitant]
     Active Substance: TRANEXAMIC ACID
     Dosage: 250 MG
     Route: 048
     Dates: start: 20220416, end: 20220420
  14. MIYA-BM [Concomitant]
     Active Substance: CLOSTRIDIUM BUTYRICUM SPORES STRAIN M-55
     Dosage: UNK
     Route: 048
     Dates: start: 20220419, end: 20220430
  15. MYCOPHENOLATE MOFETIL [Concomitant]
     Active Substance: MYCOPHENOLATE MOFETIL
     Dosage: UNK REDUCED DOSE

REACTIONS (13)
  - Drug interaction [Recovered/Resolved]
  - Drug level increased [Recovered/Resolved]
  - Diarrhoea [Recovered/Resolved]
  - Renal impairment [Recovering/Resolving]
  - Back pain [Unknown]
  - Abdominal pain [Unknown]
  - Nausea [Recovered/Resolved]
  - Dehydration [Unknown]
  - Hypophagia [Recovered/Resolved]
  - Vomiting [Recovered/Resolved]
  - Urine output increased [Unknown]
  - Abdominal discomfort [Recovered/Resolved]
  - C-reactive protein increased [Recovered/Resolved]

NARRATIVE: CASE EVENT DATE: 20220416
